FAERS Safety Report 18383129 (Version 4)
Quarter: 2022Q2

REPORT INFORMATION
  Report Type: Spontaneous
  Country: US (occurrence: US)
  Receive Date: 20201014
  Receipt Date: 20220505
  Transmission Date: 20220721
  Serious: No
  Sender: FDA-Public Use
  Company Number: US-PFIZER INC-2020396838

PATIENT
  Age: 51 Year
  Sex: Female

DRUGS (2)
  1. XELJANZ XR [Suspect]
     Active Substance: TOFACITINIB CITRATE
     Indication: Rheumatoid arthritis
     Dosage: 11 MG, DAILY
     Route: 048
     Dates: start: 2018
  2. XELJANZ XR [Suspect]
     Active Substance: TOFACITINIB CITRATE
     Dosage: 11 MG, 1X/DAY
     Route: 048
     Dates: start: 2018

REACTIONS (9)
  - Drug ineffective [Not Recovered/Not Resolved]
  - Illness [Unknown]
  - Memory impairment [Unknown]
  - Condition aggravated [Unknown]
  - Inflammation [Unknown]
  - Product dose omission issue [Unknown]
  - Psoriasis [Unknown]
  - Skin exfoliation [Unknown]
  - Swelling [Recovering/Resolving]
